FAERS Safety Report 5230809-6 (Version None)
Quarter: 2007Q1

REPORT INFORMATION
  Report Type: 
  Country: None (occurrence: None)
  Receive Date: 20070202
  Receipt Date: 20070118
  Transmission Date: 20070707
  Serious: Yes (Hospitalization)
  Sender: FDA-Public Use
  Company Number: GXKR2007SE01142

PATIENT
  Age: 69 Year
  Sex: Female

DRUGS (4)
  1. LINATIL (NGX) (ENALAPRIL MALEATE) TABLET, 10MG [Suspect]
     Indication: HYPERTONIA
     Dosage: 5 MG, QD, ORAL
     Route: 048
     Dates: start: 20061031
  2. AMLODIPINE [Suspect]
     Indication: HYPERTONIA
     Dosage: ORAL
     Route: 048
     Dates: start: 20060301, end: 20061106
  3. ARTHROTEC [Concomitant]
  4. RANITIDINE [Concomitant]

REACTIONS (3)
  - ABDOMINAL PAIN [None]
  - ULCER [None]
  - VOMITING [None]
